FAERS Safety Report 9699790 (Version 1)
Quarter: 2013Q4

REPORT INFORMATION
  Report Type: Spontaneous
  Country: IT (occurrence: IT)
  Receive Date: 20131120
  Receipt Date: 20131120
  Transmission Date: 20140711
  Serious: Yes (Hospitalization)
  Sender: FDA-Public Use
  Company Number: IT-TEVA-444136ISR

PATIENT
  Age: 90 Year
  Sex: Female

DRUGS (9)
  1. FENOFIBRATO [Suspect]
     Indication: HYPERTRIGLYCERIDAEMIA
     Dosage: 200 MILLIGRAM DAILY;
     Route: 048
     Dates: start: 20100101, end: 20131027
  2. COUMADIN 5MG [Suspect]
     Indication: ATRIAL FIBRILLATION
     Dosage: 1 DOSAGE FORMS DAILY;
     Route: 048
     Dates: start: 20050101, end: 20131027
  3. MINITRAN [Concomitant]
  4. LASIX 500MG [Concomitant]
  5. LANITOP 0.1MG [Concomitant]
  6. NOVORAPID [Concomitant]
     Route: 058
  7. NOVOMIX [Concomitant]
     Route: 058
  8. LANCTUS [Concomitant]
     Route: 058
  9. STILNOX 10MG [Concomitant]

REACTIONS (2)
  - Rectal haemorrhage [Recovering/Resolving]
  - Coagulation test abnormal [Recovering/Resolving]
